FAERS Safety Report 15947904 (Version 4)
Quarter: 2019Q1

REPORT INFORMATION
  Report Type: Report from Study
  Country: US (occurrence: US)
  Receive Date: 20190212
  Receipt Date: 20190318
  Transmission Date: 20190417
  Serious: Yes (Hospitalization, Other)
  Sender: FDA-Public Use
  Company Number: US-GILEAD-2019-0389906

PATIENT
  Age: 73 Year
  Sex: Female

DRUGS (11)
  1. SYNTHROID [Concomitant]
     Active Substance: LEVOTHYROXINE SODIUM
  2. ORENITRAM [Concomitant]
     Active Substance: TREPROSTINIL
  3. AMBRISENTAN [Suspect]
     Active Substance: AMBRISENTAN
     Indication: PULMONARY ARTERIAL HYPERTENSION
     Dosage: 10 MG, QD
     Route: 065
     Dates: start: 20171218
  4. DILTIAZEM. [Concomitant]
     Active Substance: DILTIAZEM
  5. PREDNISONE. [Concomitant]
     Active Substance: PREDNISONE
  6. ADCIRCA [Suspect]
     Active Substance: TADALAFIL
     Indication: PULMONARY ARTERIAL HYPERTENSION
     Route: 065
     Dates: start: 20181115
  7. NEXIUM [Concomitant]
     Active Substance: ESOMEPRAZOLE MAGNESIUM
  8. PRAVASTATIN. [Concomitant]
     Active Substance: PRAVASTATIN
  9. ALLOPURINOL. [Concomitant]
     Active Substance: ALLOPURINOL
  10. GABAPENTIN. [Concomitant]
     Active Substance: GABAPENTIN
  11. URSODIOL. [Concomitant]
     Active Substance: URSODIOL

REACTIONS (3)
  - Pneumonia [Unknown]
  - Influenza [Unknown]
  - Product dose omission [Recovered/Resolved]

NARRATIVE: CASE EVENT DATE: 20190204
